FAERS Safety Report 23115211 (Version 3)
Quarter: 2023Q4

REPORT INFORMATION
  Report Type: Spontaneous
  Country: US (occurrence: None)
  Receive Date: 20231027
  Receipt Date: 20231206
  Transmission Date: 20240110
  Serious: No
  Sender: FDA-Public Use
  Company Number: 2023A242058

PATIENT
  Age: 30360 Day
  Sex: Female

DRUGS (2)
  1. SYMBICORT [Suspect]
     Active Substance: BUDESONIDE\FORMOTEROL FUMARATE DIHYDRATE
     Indication: Chronic obstructive pulmonary disease
     Dosage: TAKING 2 PUFFS AT 4PM, TWO PUFFS AT 9:00PM, 2 PUFFS AT MIDNNIGHT AND 2 PUFFS UNKNOWN
     Route: 055
  2. ALBUTEROL [Concomitant]
     Active Substance: ALBUTEROL

REACTIONS (8)
  - Asthma [Unknown]
  - Dyspnoea [Unknown]
  - Medication error [Unknown]
  - Product use issue [Unknown]
  - Overdose [Unknown]
  - Intentional device misuse [Unknown]
  - Device malfunction [Unknown]
  - Device mechanical issue [Unknown]

NARRATIVE: CASE EVENT DATE: 20231023
